FAERS Safety Report 26007932 (Version 1)
Quarter: 2025Q4

REPORT INFORMATION
  Report Type: Spontaneous
  Country: EU (occurrence: EU)
  Receive Date: 20251106
  Receipt Date: 20251106
  Transmission Date: 20260117
  Serious: Yes (Other)
  Sender: BRECKENRIDGE PHARMACEUTICAL, INC.
  Company Number: EU-Breckenridge Pharmaceutical, Inc.-2188040

PATIENT
  Sex: Female

DRUGS (29)
  1. OMEPRAZOLE [Suspect]
     Active Substance: OMEPRAZOLE
     Indication: Adverse drug reaction
  2. HYDROCORTISONE [Concomitant]
     Active Substance: HYDROCORTISONE
  3. ROSUVASTATIN [Concomitant]
     Active Substance: ROSUVASTATIN
  4. EZETIMIBE [Concomitant]
     Active Substance: EZETIMIBE
  5. BECLOMETHASONE DIPROPIONATE [Concomitant]
     Active Substance: BECLOMETHASONE DIPROPIONATE
  6. ASPIRIN [Concomitant]
     Active Substance: ASPIRIN
  7. AMITRIPTYLINE HYDROCHLORIDE [Concomitant]
     Active Substance: AMITRIPTYLINE HYDROCHLORIDE
  8. FUROSEMIDE [Concomitant]
     Active Substance: FUROSEMIDE
  9. AMLODIPINE [Concomitant]
     Active Substance: AMLODIPINE BESYLATE
  10. NORTRIPTYLINE [Concomitant]
     Active Substance: NORTRIPTYLINE
  11. NAPROXEN [Concomitant]
     Active Substance: NAPROXEN
  12. TERBINAFINE [Concomitant]
     Active Substance: TERBINAFINE
  13. MEBEVERINE HYDROCHLORIDE [Concomitant]
     Active Substance: MEBEVERINE HYDROCHLORIDE
  14. IPRATROPIUM BROMIDE [Concomitant]
     Active Substance: IPRATROPIUM BROMIDE
  15. EPIMAX EXCETRA [Concomitant]
  16. BECLOMETHASONE DIPROPIONATE [Concomitant]
     Active Substance: BECLOMETHASONE DIPROPIONATE
  17. XAILIN NIGHT [Concomitant]
  18. HYLO NIGHT [Concomitant]
  19. BENDROFLUMETHIAZIDE [Concomitant]
     Active Substance: BENDROFLUMETHIAZIDE
  20. ZOPICLONE [Concomitant]
     Active Substance: ZOPICLONE
  21. SEA WATER [Concomitant]
     Active Substance: SEA WATER
  22. PERINDOPRIL ERBUMINE [Concomitant]
     Active Substance: PERINDOPRIL ERBUMINE
  23. FEXOFENADINE [Concomitant]
     Active Substance: FEXOFENADINE HYDROCHLORIDE
  24. ESTRADIOL [Concomitant]
     Active Substance: ESTRADIOL
  25. DOCUSATE SODIUM [Concomitant]
     Active Substance: DOCUSATE SODIUM
  26. REFRESH CELLUVISC [Concomitant]
     Active Substance: CARBOXYMETHYLCELLULOSE SODIUM
  27. CROMOLYN SODIUM [Concomitant]
     Active Substance: CROMOLYN SODIUM
  28. CARBOCYSTEINE [Concomitant]
     Active Substance: CARBOCYSTEINE
  29. FUSIDIC ACID [Concomitant]
     Active Substance: FUSIDIC ACID

REACTIONS (2)
  - Barrett^s oesophagus [Unknown]
  - Oesophageal irritation [Unknown]
